FAERS Safety Report 4682791-8 (Version None)
Quarter: 2005Q2

REPORT INFORMATION
  Report Type: 
  Country: None (occurrence: None)
  Receive Date: 20050531
  Receipt Date: 20050107
  Transmission Date: 20051028
  Serious: Yes (Hospitalization)
  Sender: FDA-Public Use
  Company Number: 200510176US

PATIENT
  Sex: Male
  Weight: 80 kg

DRUGS (1)
  1. LOVENOX [Suspect]
     Indication: DEEP VEIN THROMBOSIS
     Dosage: 1.5 MG/KG QD SC
     Route: 058

REACTIONS (1)
  - PULMONARY EMBOLISM [None]
